FAERS Safety Report 6844789-0 (Version None)
Quarter: 2010Q3

REPORT INFORMATION
  Report Type: 
  Country: None (occurrence: None)
  Receive Date: 20100715
  Receipt Date: 20100702
  Transmission Date: 20110219
  Serious: Yes (Hospitalization)
  Sender: FDA-Public Use
  Company Number: US-CELGENEUS-163-20785-10042202

PATIENT
  Sex: Male
  Weight: 34 kg

DRUGS (7)
  1. THALOMID [Suspect]
     Indication: ANTIANGIOGENIC THERAPY
     Route: 048
     Dates: start: 20090909, end: 20100301
  2. CYTOXAN [Suspect]
     Indication: ANTIANGIOGENIC THERAPY
     Route: 048
     Dates: start: 20090901, end: 20100301
  3. ETOPOSIDE [Suspect]
     Indication: ANTIANGIOGENIC THERAPY
     Route: 048
     Dates: start: 20090901, end: 20100301
  4. CELEBREX [Concomitant]
     Indication: ANTIANGIOGENIC THERAPY
     Route: 048
     Dates: start: 20090901, end: 20100301
  5. VALACYCLOVIR [Concomitant]
     Indication: PROPHYLAXIS
     Route: 048
     Dates: start: 20091101, end: 20100601
  6. MICONAZOLE [Concomitant]
     Indication: PRODUCT USED FOR UNKNOWN INDICATION
     Route: 047
  7. PEPCID [Concomitant]
     Indication: PRODUCT USED FOR UNKNOWN INDICATION
     Route: 047

REACTIONS (2)
  - BONE MARROW FAILURE [None]
  - CELLULITIS [None]
